FAERS Safety Report 17190012 (Version 1)
Quarter: 2019Q4

REPORT INFORMATION
  Report Type: Spontaneous
  Country: CN (occurrence: CN)
  Receive Date: 20191223
  Receipt Date: 20191223
  Transmission Date: 20200122
  Serious: Yes (Other)
  Sender: FDA-Public Use
  Company Number: CN-BAXTER-2019BAX025773

PATIENT
  Age: 44 Year
  Sex: Female
  Weight: 46 kg

DRUGS (4)
  1. 5% GLUCOSE  INJECTION [Suspect]
     Active Substance: DEXTROSE
     Indication: MEDICATION DILUTION
     Dosage: EC: 5% GLUCOSE + EPIRUBICIN HYDROCHLORIDE 120 MG; 50GTT / MIN
     Route: 041
     Dates: start: 20191201, end: 20191201
  2. 0.9% SODIUM CHLORIDE INJECTION [Suspect]
     Active Substance: SODIUM CHLORIDE
     Indication: MEDICATION DILUTION
     Dosage: EC: 0.9% SODIUM CHLORIDE + CYCLOPHOSPHAMIDE 0.8 G; 50GTT / MIN
     Route: 041
     Dates: start: 20191201, end: 20191201
  3. ENDOXAN [Suspect]
     Active Substance: CYCLOPHOSPHAMIDE
     Indication: BREAST CANCER FEMALE
     Dosage: EC: 0.9% SODIUM CHLORIDE 100ML + CYCLOPHOSPHAMIDE; 50GTT / MIN
     Route: 041
     Dates: start: 20191201, end: 20191201
  4. EPIRUBICIN HYDROCHLORIDE. [Suspect]
     Active Substance: EPIRUBICIN HYDROCHLORIDE
     Indication: BREAST CANCER FEMALE
     Dosage: EC: 5% GLUCOSE 250ML + EPIRUBICIN HYDROCHLORIDE; 50GTT / MIN
     Route: 041
     Dates: start: 20191201, end: 20191201

REACTIONS (1)
  - Granulocytopenia [Recovering/Resolving]

NARRATIVE: CASE EVENT DATE: 20191211
